FAERS Safety Report 7139553-1 (Version None)
Quarter: 2010Q4

REPORT INFORMATION
  Report Type: 
  Country: None (occurrence: None)
  Receive Date: 20101206
  Receipt Date: 20101005
  Transmission Date: 20110411
  Serious: Yes (Hospitalization)
  Sender: FDA-Public Use
  Company Number: CA-MERCK-1008USA01425

PATIENT
  Sex: Female

DRUGS (5)
  1. HYZAAR [Suspect]
     Route: 048
     Dates: start: 20030101, end: 20100801
  2. COZAAR [Suspect]
     Route: 048
     Dates: start: 20100801, end: 20100801
  3. SYNTHROID [Concomitant]
     Route: 065
  4. NEXIUM [Concomitant]
     Route: 065
  5. EZETROL [Concomitant]
     Route: 065

REACTIONS (3)
  - BLOOD SODIUM INCREASED [None]
  - HYPERTENSION [None]
  - RASH GENERALISED [None]
